FAERS Safety Report 21745659 (Version 3)
Quarter: 2023Q1

REPORT INFORMATION
  Report Type: Spontaneous
  Country: US (occurrence: US)
  Receive Date: 20221219
  Receipt Date: 20230105
  Transmission Date: 20230418
  Serious: No
  Sender: FDA-Public Use
  Company Number: US-LUPIN PHARMACEUTICALS INC.-2022-14353

PATIENT

DRUGS (1)
  1. ALBUTEROL SULFATE [Suspect]
     Active Substance: ALBUTEROL SULFATE
     Indication: Asthma
     Dosage: UNK (2-4 PUFFS EVERY 4-6 HOURS)

REACTIONS (5)
  - Wrong technique in device usage process [Unknown]
  - Incorrect dose administered by device [Unknown]
  - Wrong technique in product usage process [Unknown]
  - Device deposit issue [Unknown]
  - No adverse event [Unknown]

NARRATIVE: CASE EVENT DATE: 20221206
